FAERS Safety Report 9778380 (Version 1)
Quarter: 2013Q4

REPORT INFORMATION
  Report Type: Spontaneous
  Country: GB (occurrence: GB)
  Receive Date: 20131223
  Receipt Date: 20131223
  Transmission Date: 20140711
  Serious: Yes (Life-Threatening, Hospitalization)
  Sender: FDA-Public Use
  Company Number: GB-TEVA-451489ISR

PATIENT
  Age: 40 Year
  Sex: Female

DRUGS (5)
  1. GABAPENTIN [Suspect]
     Dosage: NOT KNOWN
     Route: 048
  2. DIAZEPAM [Suspect]
  3. METHADONE [Suspect]
  4. ALCOHOL [Suspect]
  5. HEROIN [Suspect]

REACTIONS (2)
  - Intentional overdose [Recovering/Resolving]
  - Coma [Unknown]
